FAERS Safety Report 16573630 (Version 1)
Quarter: 2019Q3

REPORT INFORMATION
  Report Type: Spontaneous
  Country: BI (occurrence: BI)
  Receive Date: 20190715
  Receipt Date: 20190715
  Transmission Date: 20191004
  Serious: Yes (Other)
  Sender: FDA-Public Use
  Company Number: BI-ELI_LILLY_AND_COMPANY-BI201907005574

PATIENT
  Sex: Male

DRUGS (1)
  1. PROZAC [Suspect]
     Active Substance: FLUOXETINE HYDROCHLORIDE
     Indication: NEURALGIA
     Dosage: UNK UNK, UNKNOWN
     Route: 065
     Dates: start: 201709

REACTIONS (4)
  - Benign neoplasm of bladder [Unknown]
  - Blood urine present [Unknown]
  - Off label use [Unknown]
  - Dysuria [Unknown]

NARRATIVE: CASE EVENT DATE: 2017
